FAERS Safety Report 19413584 (Version 2)
Quarter: 2022Q1

REPORT INFORMATION
  Report Type: Spontaneous
  Country: CA (occurrence: CA)
  Receive Date: 20210614
  Receipt Date: 20220124
  Transmission Date: 20220423
  Serious: Yes (Death, Other)
  Sender: FDA-Public Use
  Company Number: CA-OTSUKA-2021_020106

PATIENT
  Age: 74 Year
  Sex: Female

DRUGS (2)
  1. ABILIFY MAINTENA [Suspect]
     Active Substance: ARIPIPRAZOLE
     Indication: Psychiatric disorder prophylaxis
     Dosage: UNK UNK, QM (1 EVERY 1 MONTHS)
     Route: 051
  2. VENLAFAXINE HYDROCHLORIDE [Concomitant]
     Active Substance: VENLAFAXINE HYDROCHLORIDE
     Indication: Product used for unknown indication
     Dosage: UNK, QM
     Route: 065

REACTIONS (16)
  - Anal incontinence [Fatal]
  - Coma scale abnormal [Fatal]
  - Depressed level of consciousness [Fatal]
  - General physical health deterioration [Fatal]
  - Pupil fixed [Fatal]
  - Posturing [Fatal]
  - Lacrimation increased [Fatal]
  - Hypotonia [Fatal]
  - Bradycardia [Fatal]
  - Muscle rigidity [Fatal]
  - Trismus [Fatal]
  - Pyrexia [Fatal]
  - Tachycardia [Fatal]
  - Neuroleptic malignant syndrome [Fatal]
  - Cardiac arrest [Fatal]
  - Product use in unapproved indication [Unknown]
